FAERS Safety Report 10745030 (Version 1)
Quarter: 2015Q1

REPORT INFORMATION
  Report Type: Spontaneous
  Country: US (occurrence: US)
  Receive Date: 20150128
  Receipt Date: 20150128
  Transmission Date: 20150721
  Serious: No
  Sender: FDA-Public Use
  Company Number: US-009507513-1501USA001304

PATIENT
  Sex: Female

DRUGS (1)
  1. ASMANEX [Suspect]
     Active Substance: MOMETASONE FUROATE
     Indication: ASTHMA
     Dosage: 110 MICROGRAM, ONE INHALATION AT NIGHT
     Route: 055

REACTIONS (4)
  - Product quality issue [Unknown]
  - Cough [Unknown]
  - Drug dose omission [Unknown]
  - Asthma [Unknown]

NARRATIVE: CASE EVENT DATE: 20150105
